FAERS Safety Report 10377033 (Version 1)
Quarter: 2014Q3

REPORT INFORMATION
  Report Type: Spontaneous
  Country: FR (occurrence: FR)
  Receive Date: 20140812
  Receipt Date: 20140812
  Transmission Date: 20150326
  Serious: Yes (Hospitalization)
  Sender: FDA-Public Use
  Company Number: FR-ROCHE-1447854

PATIENT
  Age: 40 Year
  Sex: Male

DRUGS (19)
  1. MALOCIDE [Concomitant]
     Active Substance: PYRIMETHAMINE
     Route: 065
     Dates: start: 20140418
  2. ISENTRESS [Suspect]
     Active Substance: RALTEGRAVIR POTASSIUM
     Indication: HIV INFECTION
     Route: 048
     Dates: start: 20140624, end: 20140712
  3. EXTENCILLINE [Concomitant]
     Active Substance: PENICILLIN G BENZATHINE
     Indication: SYPHILIS
     Route: 065
     Dates: start: 20140417
  4. ROVALCYTE [Suspect]
     Active Substance: VALGANCICLOVIR HYDROCHLORIDE
     Indication: CYTOMEGALOVIRUS INFECTION
     Route: 048
     Dates: start: 20140603, end: 20140717
  5. ETHAMBUTOL [Concomitant]
     Active Substance: ETHAMBUTOL HYDROCHLORIDE
     Route: 065
     Dates: start: 20140418
  6. FOLINIC ACID [Concomitant]
     Active Substance: LEUCOVORIN
     Route: 065
     Dates: start: 20140417
  7. CLINDAMYCIN [Concomitant]
     Active Substance: CLINDAMYCIN\CLINDAMYCIN PHOSPHATE
     Route: 065
     Dates: start: 20140627
  8. LEDERFOLINE [Concomitant]
     Active Substance: LEUCOVORIN CALCIUM
     Route: 065
     Dates: start: 20140627
  9. MALOCIDE [Concomitant]
     Active Substance: PYRIMETHAMINE
     Route: 065
     Dates: start: 20140627
  10. PIRILENE [Concomitant]
     Active Substance: PYRAZINAMIDE
     Route: 065
     Dates: start: 20140418, end: 20140513
  11. CORTANCYL [Concomitant]
     Active Substance: PREDNISONE
     Route: 065
     Dates: start: 20140627
  12. RIMIFON [Concomitant]
     Active Substance: ISONIAZID
     Route: 065
     Dates: start: 20140418
  13. PENTACARINAT [Concomitant]
     Active Substance: PENTAMIDINE ISETHIONATE
     Route: 065
     Dates: start: 20140624
  14. CLINDAMYCIN [Concomitant]
     Active Substance: CLINDAMYCIN\CLINDAMYCIN PHOSPHATE
     Route: 065
     Dates: start: 20140513
  15. ANSATIPINE [Concomitant]
     Active Substance: RIFABUTIN
     Route: 065
     Dates: start: 20140513, end: 201406
  16. TRUVADA [Suspect]
     Active Substance: EMTRICITABINE\TENOFOVIR DISOPROXIL FUMARATE
     Indication: HIV INFECTION
     Route: 048
     Dates: start: 20140624, end: 20140717
  17. ADIAZINE [Concomitant]
     Active Substance: SULFADIAZINE
     Route: 065
     Dates: start: 20140417, end: 20140513
  18. RIFINAH [Concomitant]
     Active Substance: ISONIAZID\RIFAMPIN
     Route: 065
     Dates: start: 20140627
  19. ATRIPLA [Concomitant]
     Active Substance: EFAVIRENZ\EMTRICITABINE\TENOFOVIR DISOPROXIL FUMARATE
     Indication: PRURITUS
     Route: 065
     Dates: start: 20140712

REACTIONS (1)
  - Drug reaction with eosinophilia and systemic symptoms [Recovering/Resolving]

NARRATIVE: CASE EVENT DATE: 20140712
